FAERS Safety Report 24963883 (Version 2)
Quarter: 2025Q1

REPORT INFORMATION
  Report Type: Spontaneous
  Country: US (occurrence: US)
  Receive Date: 20250213
  Receipt Date: 20250214
  Transmission Date: 20250408
  Serious: No
  Sender: ROCHE
  Company Number: US-ROCHE-10000201148

PATIENT
  Sex: Female
  Weight: 102.06 kg

DRUGS (1)
  1. CELLCEPT [Suspect]
     Active Substance: MYCOPHENOLATE MOFETIL
     Indication: Liver transplant
     Dosage: MORNING AND NIGHT
     Route: 048
     Dates: start: 2018

REACTIONS (5)
  - Product packaging issue [Unknown]
  - Product physical issue [Unknown]
  - Product complaint [Unknown]
  - Malaise [Unknown]
  - Illness [Unknown]
